FAERS Safety Report 7319592-8 (Version None)
Quarter: 2011Q1

REPORT INFORMATION
  Report Type: 
  Country: None (occurrence: None)
  Receive Date: 20110228
  Receipt Date: 20100604
  Transmission Date: 20110831
  Serious: No
  Sender: FDA-Public Use
  Company Number: A0863062A

PATIENT
  Age: 63 Year
  Sex: Female

DRUGS (5)
  1. LAMICTAL [Suspect]
     Route: 048
     Dates: start: 20100501
  2. NORTRIPTYLINE [Concomitant]
  3. ZOLOFT [Concomitant]
  4. CLONOPIN [Concomitant]
  5. RESPERIDOL [Concomitant]

REACTIONS (1)
  - OEDEMA PERIPHERAL [None]
